FAERS Safety Report 6274941-7 (Version None)
Quarter: 2009Q3

REPORT INFORMATION
  Report Type: 
  Country: None (occurrence: None)
  Receive Date: 20090721
  Receipt Date: 20090714
  Transmission Date: 20100115
  Serious: Yes (Hospitalization)
  Sender: FDA-Public Use
  Company Number: NL-B.I. PHARMACEUTICALS,INC./RIDGEFIELD-2009-NL-00444NL

PATIENT
  Sex: Male
  Weight: 75 kg

DRUGS (1)
  1. MICARDIS HCT 40/12.5 [Suspect]
     Indication: HYPERTENSION
     Dosage: STRENGTH: 40/12,5MG 1DD1
     Dates: start: 20090330, end: 20090625

REACTIONS (2)
  - ANGIOEDEMA [None]
  - STRIDOR [None]
